FAERS Safety Report 8064307-1 (Version None)
Quarter: 2012Q1

REPORT INFORMATION
  Report Type: 
  Country: None (occurrence: None)
  Receive Date: 20120123
  Receipt Date: 20120111
  Transmission Date: 20120608
  Serious: Yes (Hospitalization)
  Sender: FDA-Public Use
  Company Number: IE-MEDIMMUNE-MEDI-0014535

PATIENT
  Sex: Male
  Weight: 6.48 kg

DRUGS (3)
  1. FERROUS SULFATE TAB [Concomitant]
  2. KAPSOVIT [Concomitant]
  3. SYNAGIS [Suspect]
     Route: 030
     Dates: start: 20111018, end: 20111018

REACTIONS (2)
  - WEIGHT DECREASED [None]
  - GASTROINTESTINAL DISORDER [None]
